FAERS Safety Report 15662076 (Version 3)
Quarter: 2018Q4

REPORT INFORMATION
  Report Type: Report from Study
  Country: FR (occurrence: FR)
  Receive Date: 20181127
  Receipt Date: 20181221
  Transmission Date: 20190205
  Serious: Yes (Hospitalization, Other)
  Sender: FDA-Public Use
  Company Number: PHHY2018FR164194

PATIENT
  Sex: Female
  Weight: 59 kg

DRUGS (2)
  1. VOTRIENT [Suspect]
     Active Substance: PAZOPANIB HYDROCHLORIDE
     Indication: METASTATIC RENAL CELL CARCINOMA
     Dosage: 800 MG, QD
     Route: 048
     Dates: start: 20180906, end: 20180923
  2. VOTRIENT [Suspect]
     Active Substance: PAZOPANIB HYDROCHLORIDE
     Dosage: 600 MG, UNK
     Route: 048
     Dates: start: 20181001

REACTIONS (11)
  - Ventricular hypertrophy [Unknown]
  - Stress cardiomyopathy [Recovering/Resolving]
  - Hypertensive crisis [Recovering/Resolving]
  - Diastolic dysfunction [Unknown]
  - Nausea [Recovering/Resolving]
  - Hypertension [Recovering/Resolving]
  - Chest pain [Unknown]
  - Abdominal pain [Unknown]
  - Vomiting [Unknown]
  - Chest discomfort [Unknown]
  - Diarrhoea [Not Recovered/Not Resolved]

NARRATIVE: CASE EVENT DATE: 20180911
